FAERS Safety Report 6502694-3 (Version None)
Quarter: 2009Q4

REPORT INFORMATION
  Report Type: 
  Country: None (occurrence: None)
  Receive Date: 20091217
  Receipt Date: 20091208
  Transmission Date: 20100525
  Serious: Yes (Other)
  Sender: FDA-Public Use
  Company Number: IN-JNJFOC-20091202877

PATIENT
  Age: 19 Year
  Sex: Male
  Weight: 65 kg

DRUGS (5)
  1. HALOPERIDOL [Suspect]
     Indication: MANIA
     Route: 030
  2. HALOPERIDOL [Suspect]
     Route: 065
  3. CHLORPROMAZINE [Suspect]
     Indication: MANIA
     Route: 065
  4. PROMETHAZINE [Suspect]
     Indication: MANIA
     Route: 065
  5. PROMETHAZINE [Suspect]
     Route: 030

REACTIONS (3)
  - ECHOLALIA [None]
  - ECHOPRAXIA [None]
  - NEUROLEPTIC MALIGNANT SYNDROME [None]
